FAERS Safety Report 11556519 (Version 1)
Quarter: 2015Q3

REPORT INFORMATION
  Report Type: Spontaneous
  Country: US (occurrence: US)
  Receive Date: 20150916
  Receipt Date: 20150916
  Transmission Date: 20151125
  Serious: No
  Sender: FDA-Public Use
  Company Number: US-ELI_LILLY_AND_COMPANY-US200806000181

PATIENT
  Sex: Female

DRUGS (4)
  1. METOPROLOL [Concomitant]
     Active Substance: METOPROLOL
  2. ASPIRIN. [Concomitant]
     Active Substance: ASPIRIN
  3. FORTEO [Suspect]
     Active Substance: TERIPARATIDE
     Dates: start: 20080522
  4. ISORBIDE [Concomitant]
     Active Substance: ISOSORBIDE

REACTIONS (2)
  - Rash [Not Recovered/Not Resolved]
  - Genital rash [Not Recovered/Not Resolved]

NARRATIVE: CASE EVENT DATE: 2008
